FAERS Safety Report 7685926-8 (Version None)
Quarter: 2011Q3

REPORT INFORMATION
  Report Type: 
  Country: None (occurrence: None)
  Receive Date: 20110815
  Receipt Date: 20110815
  Transmission Date: 20111222
  Serious: No
  Sender: FDA-Public Use
  Company Number: None

PATIENT
  Age: 55 Year
  Sex: Female
  Weight: 104.5 kg

DRUGS (1)
  1. ACTOS [Suspect]
     Indication: TYPE 2 DIABETES MELLITUS
     Dosage: 1 30 MG. TABLET EA. A.M ORAL
     Route: 048
     Dates: start: 20101001, end: 20110726

REACTIONS (5)
  - PAIN [None]
  - SWELLING [None]
  - WEIGHT DECREASED [None]
  - ABASIA [None]
  - OEDEMA PERIPHERAL [None]
